FAERS Safety Report 7187162-0 (Version None)
Quarter: 2010Q4

REPORT INFORMATION
  Report Type: 
  Country: None (occurrence: None)
  Receive Date: 20101222
  Receipt Date: 20101213
  Transmission Date: 20110411
  Serious: Yes (Other)
  Sender: FDA-Public Use
  Company Number: BR-GENENTECH-304280

PATIENT
  Sex: Female
  Weight: 57 kg

DRUGS (13)
  1. RITUXIMAB [Suspect]
     Indication: RHEUMATOID ARTHRITIS
     Dosage: 1000 MG, UNK
     Route: 042
     Dates: start: 20080101, end: 20080101
  2. ENBREL [Suspect]
     Indication: PRODUCT USED FOR UNKNOWN INDICATION
     Dosage: 50 MG, 1/WEEK
     Route: 065
     Dates: start: 20000101
  3. ENBREL [Suspect]
     Dosage: UNK
     Route: 065
  4. ENBREL [Suspect]
     Dosage: UNK
     Route: 065
  5. CHLOROQUINE [Concomitant]
     Indication: PRODUCT USED FOR UNKNOWN INDICATION
     Dosage: UNK
  6. CHLOROQUINE [Concomitant]
     Dosage: IN THE MORNING
  7. MELOXICAM [Concomitant]
     Indication: PRODUCT USED FOR UNKNOWN INDICATION
     Dosage: 15 MG, PRN
  8. MELOXICAM [Concomitant]
  9. CALCORT [Concomitant]
     Indication: PRODUCT USED FOR UNKNOWN INDICATION
     Dosage: 6 MG, QOD
  10. CALCORT [Concomitant]
  11. TOCILIZUMAB [Suspect]
     Indication: RHEUMATOID ARTHRITIS
     Dosage: 8 MG/KG, 1/WEEK
     Route: 042
     Dates: start: 20100927, end: 20101025
  12. ARAVA [Concomitant]
     Dosage: IN THE MORNING
  13. FINASTERIDE [Concomitant]
     Indication: ALOPECIA

REACTIONS (4)
  - ARTHRITIS [None]
  - ARTHROPATHY [None]
  - DRUG INEFFECTIVE [None]
  - VIRAL INFECTION [None]
